FAERS Safety Report 7536343-2 (Version None)
Quarter: 2011Q2

REPORT INFORMATION
  Report Type: 
  Country: None (occurrence: None)
  Receive Date: 20110602
  Receipt Date: 20110524
  Transmission Date: 20111010
  Serious: Yes (Death, Hospitalization, Other)
  Sender: FDA-Public Use
  Company Number: 1997002030-FJ

PATIENT
  Age: 3 Year
  Sex: Male
  Weight: 12 kg

DRUGS (7)
  1. PROGRAF [Suspect]
     Indication: SMALL INTESTINE TRANSPLANT
     Dosage: 0.10 MG/KG, 0.06 MG/KG
  2. PROGRAF [Suspect]
     Indication: SMALL INTESTINE TRANSPLANT
     Dosage: 0.32 MG/KG, 0.61 MG/KG
  3. METHYLPREDNISOLONE [Suspect]
     Dosage: 24 MG, IV NOS
     Route: 042
     Dates: start: 19960517, end: 19970912
  4. CYCLOPHOSPHAMIDE [Concomitant]
  5. STEROID [Concomitant]
  6. PROGRAF [Suspect]
     Indication: SMALL INTESTINE TRANSPLANT
     Dosage: 4 MG, ORAL
     Route: 048
     Dates: start: 19960517, end: 19970827
  7. AZATHIOPRINE [Suspect]
     Dosage: 24 MG, ORAL
     Route: 048
     Dates: start: 19960517, end: 19970823

REACTIONS (9)
  - SUBDURAL HAEMORRHAGE [None]
  - TRANSPLANT REJECTION [None]
  - BRONCHOPULMONARY ASPERGILLOSIS [None]
  - CYTOMEGALOVIRUS INFECTION [None]
  - EPSTEIN-BARR VIRUS INFECTION [None]
  - ESCHERICHIA SEPSIS [None]
  - RESPIRATORY FAILURE [None]
  - DRUG INEFFECTIVE FOR UNAPPROVED INDICATION [None]
  - PNEUMOCYSTIS JIROVECI PNEUMONIA [None]
